FAERS Safety Report 20067004 (Version 1)
Quarter: 2021Q4

REPORT INFORMATION
  Report Type: Spontaneous
  Country: US (occurrence: US)
  Receive Date: 20211115
  Receipt Date: 20211115
  Transmission Date: 20220303
  Serious: No
  Sender: FDA-Public Use
  Company Number: US-BoehringerIngelheim-2021-BI-138070

PATIENT
  Age: 67 Year
  Sex: Male

DRUGS (1)
  1. STIOLTO RESPIMAT [Suspect]
     Active Substance: OLODATEROL HYDROCHLORIDE\TIOTROPIUM BROMIDE MONOHYDRATE
     Indication: Chronic obstructive pulmonary disease
     Dosage: 2 PUFFS QD
     Route: 065
     Dates: start: 202110

REACTIONS (2)
  - Dyspnoea [Recovered/Resolved]
  - Dust allergy [Not Recovered/Not Resolved]

NARRATIVE: CASE EVENT DATE: 20211105
